FAERS Safety Report 6029832-3 (Version None)
Quarter: 2009Q1

REPORT INFORMATION
  Report Type: 
  Country: None (occurrence: None)
  Receive Date: 20090106
  Receipt Date: 20090106
  Transmission Date: 20090719
  Serious: No
  Sender: FDA-Public Use
  Company Number: None

PATIENT
  Age: 76 Year
  Sex: Male
  Weight: 76.2043 kg

DRUGS (2)
  1. OXYTROL [Suspect]
     Indication: POLLAKIURIA
     Dosage: PATCH 3.4 MG 2X WEEKLY
     Dates: start: 20080901
  2. OXYTROL [Suspect]
     Indication: POLLAKIURIA
     Dosage: PATCH 3.4 MG 2X WEEKLY
     Dates: start: 20081201

REACTIONS (2)
  - APPLICATION SITE PRURITUS [None]
  - RASH MACULAR [None]
